FAERS Safety Report 8257023 (Version 6)
Quarter: 2013Q2

REPORT INFORMATION
  Report Type: Report from Study
  Country: FI (occurrence: FI)
  Receive Date: 20111121
  Receipt Date: 20130627
  Transmission Date: 20140414
  Serious: Yes (Hospitalization)
  Sender: FDA-Public Use
  Company Number: FI-B.I. PHARMACEUTICALS,INC./RIDGEFIELD-2011-RD-00204DE

PATIENT
  Age: 58 Year
  Sex: Male
  Weight: 92 kg

DRUGS (3)
  1. BI 1356 [Suspect]
     Indication: TYPE 2 DIABETES MELLITUS
     Route: 048
     Dates: start: 20110804
  2. KINZALKOMB [Concomitant]
     Indication: HYPERTENSION
     Dosage: 1 ANZ
     Route: 048
     Dates: start: 2008
  3. BEMETSON CREM [Concomitant]
     Indication: PSORIASIS
     Dosage: 1 ANZ
     Route: 061
     Dates: start: 2010

REACTIONS (2)
  - Psoriasis [Recovered/Resolved]
  - Nasopharyngitis [Recovered/Resolved]
